FAERS Safety Report 7405371-X (Version None)
Quarter: 2011Q2

REPORT INFORMATION
  Report Type: 
  Country: None (occurrence: None)
  Receive Date: 20110411
  Receipt Date: 20101014
  Transmission Date: 20111010
  Serious: Yes (Hospitalization)
  Sender: FDA-Public Use
  Company Number: US-BAYER-201010010NA

PATIENT
  Age: 24 Year
  Sex: Female
  Weight: 61.678 kg

DRUGS (4)
  1. KAPIDEX [Concomitant]
     Dosage: 60 MG, UNK
     Route: 048
  2. YAZ [Suspect]
     Route: 048
     Dates: start: 20071001, end: 20091001
  3. YASMIN [Suspect]
     Indication: PRODUCT USED FOR UNKNOWN INDICATION
     Dosage: UNK
     Route: 048
     Dates: start: 20020801, end: 20060401
  4. ALEVE [Concomitant]

REACTIONS (2)
  - CHOLECYSTITIS [None]
  - CHOLECYSTECTOMY [None]
